FAERS Safety Report 18693987 (Version 1)
Quarter: 2020Q4

REPORT INFORMATION
  Report Type: Spontaneous
  Country: US (occurrence: US)
  Receive Date: 20201231
  Receipt Date: 20201231
  Transmission Date: 20210114
  Serious: No
  Sender: FDA-Public Use
  Company Number: None

PATIENT
  Age: 61 Year
  Sex: Male
  Weight: 74.8 kg

DRUGS (1)
  1. BAMLANIVIMAB. [Suspect]
     Active Substance: BAMLANIVIMAB
     Indication: COVID-19
     Dosage: ?          OTHER FREQUENCY:ONCE;?
     Route: 041
     Dates: start: 20201222, end: 20201222

REACTIONS (6)
  - Chills [None]
  - Tachycardia [None]
  - Cytokine release syndrome [None]
  - Therapy cessation [None]
  - Pyrexia [None]
  - Hypotension [None]

NARRATIVE: CASE EVENT DATE: 20201222
